FAERS Safety Report 9618943 (Version 2)
Quarter: 2013Q4

REPORT INFORMATION
  Report Type: Spontaneous
  Country: US (occurrence: US)
  Receive Date: 20131014
  Receipt Date: 20131107
  Transmission Date: 20140711
  Serious: Yes (Other)
  Sender: FDA-Public Use
  Company Number: US-TEVA-437353USA

PATIENT
  Age: 34 Year
  Sex: Female
  Weight: 58.11 kg

DRUGS (1)
  1. PARAGARD 380A [Suspect]
     Indication: CONTRACEPTION
     Route: 015
     Dates: start: 20080610, end: 20131007

REACTIONS (8)
  - Device dislocation [Recovered/Resolved]
  - Dysmenorrhoea [Recovered/Resolved]
  - Back pain [Unknown]
  - Uterine spasm [Unknown]
  - Device expulsion [Recovered/Resolved]
  - Device breakage [Recovered/Resolved]
  - Metrorrhagia [Unknown]
  - Medical device complication [Recovered/Resolved]
